FAERS Safety Report 9801288 (Version 3)
Quarter: 2015Q4

REPORT INFORMATION
  Report Type: Spontaneous
  Country: US (occurrence: US)
  Receive Date: 20140107
  Receipt Date: 20151222
  Transmission Date: 20160305
  Serious: Yes (Other)
  Sender: FDA-Public Use
  Company Number: US-GLAXOSMITHKLINE-A1042868A

PATIENT
  Age: 61 Year
  Sex: Female

DRUGS (28)
  1. TRAMADOL. [Concomitant]
     Active Substance: TRAMADOL
  2. FAMOTIDINE. [Concomitant]
     Active Substance: FAMOTIDINE
  3. ASPIRIN. [Concomitant]
     Active Substance: ASPIRIN
  4. CELEBREX [Concomitant]
     Active Substance: CELECOXIB
  5. CALCIUM CITRATE [Concomitant]
     Active Substance: CALCIUM CITRATE
  6. CRANBERRY. [Concomitant]
     Active Substance: CRANBERRY
  7. BENLYSTA [Suspect]
     Active Substance: BELIMUMAB
     Dosage: UNK, Z
     Route: 041
     Dates: start: 2011, end: 2013
  8. CLARITIN [Concomitant]
     Active Substance: LORATADINE
  9. VITAMIN C [Concomitant]
     Active Substance: ASCORBIC ACID
  10. MAGNESIUM GLUTAMATE [Concomitant]
  11. ZOLOFT [Concomitant]
     Active Substance: SERTRALINE HYDROCHLORIDE
  12. VITAMIN D [Concomitant]
     Active Substance: CHOLECALCIFEROL
  13. COQ10 [Concomitant]
     Active Substance: UBIDECARENONE
  14. UNKNOWN MEDICATION [Concomitant]
     Active Substance: UNSPECIFIED INGREDIENT
  15. BENLYSTA [Suspect]
     Active Substance: BELIMUMAB
     Indication: SYSTEMIC LUPUS ERYTHEMATOSUS
     Dosage: UNKNOWN DOSE EVERY 28 DAYS
     Route: 042
     Dates: end: 201307
  16. PRAVASTATIN [Concomitant]
     Active Substance: PRAVASTATIN\PRAVASTATIN SODIUM
  17. CYTOXAN [Suspect]
     Active Substance: CYCLOPHOSPHAMIDE
     Indication: PRODUCT USED FOR UNKNOWN INDICATION
     Dosage: UNK
  18. SONATA [Concomitant]
     Active Substance: ZALEPLON
  19. UNKNOWN MEDICATION [Concomitant]
     Active Substance: UNSPECIFIED INGREDIENT
  20. SELENIUM [Concomitant]
     Active Substance: SELENIUM
  21. D-MANNOSE [Concomitant]
  22. FISH OIL [Concomitant]
     Active Substance: FISH OIL
  23. BENLYSTA [Suspect]
     Active Substance: BELIMUMAB
     Indication: AUTOIMMUNE RETINOPATHY
     Dosage: 120 MGS EVERY 28 DAYS
     Route: 042
     Dates: start: 20110823
  24. RITUXAN [Concomitant]
     Active Substance: RITUXIMAB
  25. PRAVACHOL [Concomitant]
     Active Substance: PRAVASTATIN SODIUM
  26. SYNTHROID [Concomitant]
     Active Substance: LEVOTHYROXINE SODIUM
  27. INDAPAMIDE. [Concomitant]
     Active Substance: INDAPAMIDE
  28. CIPRO [Concomitant]
     Active Substance: CIPROFLOXACIN HYDROCHLORIDE

REACTIONS (4)
  - Drug ineffective [Unknown]
  - Autoimmune retinopathy [Not Recovered/Not Resolved]
  - Therapeutic response decreased [Unknown]
  - Drug ineffective for unapproved indication [Unknown]

NARRATIVE: CASE EVENT DATE: 201211
